FAERS Safety Report 16931079 (Version 2)
Quarter: 2019Q4

REPORT INFORMATION
  Report Type: Report from Study
  Country: CA (occurrence: CA)
  Receive Date: 20191017
  Receipt Date: 20191206
  Transmission Date: 20200122
  Serious: Yes (Death)
  Sender: FDA-Public Use
  Company Number: CA-TAIHO ONCOLOGY  INC-EU-2019-03398

PATIENT
  Sex: Male

DRUGS (8)
  1. LONSURF [Suspect]
     Active Substance: TIPIRACIL HYDROCHLORIDE\TRIFLURIDINE
     Indication: COLORECTAL CANCER
     Dosage: CYCLE 1-2?CYCLE 1 ENDED ON 12/AUG/2019?CYCLE 2 BEGAN ON 15/AUG/2019
     Route: 048
     Dates: start: 20190716
  2. MAGNESIUM [Concomitant]
     Active Substance: MAGNESIUM
     Dosage: NI
  3. SYNTHROID [Concomitant]
     Active Substance: LEVOTHYROXINE SODIUM
     Dosage: NI
  4. POTASSIUM CHLORIDE. [Concomitant]
     Active Substance: POTASSIUM CHLORIDE
     Dosage: NI
  5. CODEINE [Concomitant]
     Active Substance: CODEINE
     Dosage: NI
  6. DILAUDID [Concomitant]
     Active Substance: HYDROMORPHONE HYDROCHLORIDE
     Dosage: NI
  7. PANTOLOC [Concomitant]
     Active Substance: PANTOPRAZOLE SODIUM
     Dosage: NI
  8. VITAMIN B12 [Concomitant]
     Active Substance: CYANOCOBALAMIN
     Dosage: NI

REACTIONS (1)
  - Disease progression [Fatal]

NARRATIVE: CASE EVENT DATE: 2019
